FAERS Safety Report 10152537 (Version 1)
Quarter: 2014Q2

REPORT INFORMATION
  Report Type: Spontaneous
  Country: FR (occurrence: FR)
  Receive Date: 20140505
  Receipt Date: 20140505
  Transmission Date: 20141212
  Serious: Yes (Other)
  Sender: FDA-Public Use
  Company Number: FR-SA-2014SA033824

PATIENT
  Age: 52 Year
  Sex: Female

DRUGS (2)
  1. NASACORT [Suspect]
     Indication: POLYP
     Route: 045
     Dates: start: 2000
  2. NASACORT [Suspect]
     Indication: POLYP
     Dosage: TRIAMCINOLONE ACETONIDE WAS PURSUED AT THE SAME DAILY DOSE BUT ONLY 5 DAYS A WEEK
     Route: 045

REACTIONS (2)
  - Retinal pigment epitheliopathy [Unknown]
  - Off label use [Unknown]
